FAERS Safety Report 13734223 (Version 2)
Quarter: 2017Q3

REPORT INFORMATION
  Report Type: Spontaneous
  Country: AT (occurrence: AT)
  Receive Date: 20170708
  Receipt Date: 20170925
  Transmission Date: 20171127
  Serious: Yes (Death, Hospitalization, Other)
  Sender: FDA-Public Use
  Company Number: AT-009507513-1707AUT000295

PATIENT
  Age: 69 Year
  Sex: Male
  Weight: 88 kg

DRUGS (7)
  1. BISOPROLOL [Concomitant]
     Active Substance: BISOPROLOL
  2. DOMINAL (PROTHIPENDYL HYDROCHLORIDE) [Concomitant]
     Active Substance: PROTHIPENDYL HYDROCHLORIDE
  3. MARCOUMAR [Concomitant]
     Active Substance: PHENPROCOUMON
  4. JANUVIA [Suspect]
     Active Substance: SITAGLIPTIN PHOSPHATE
     Dosage: 1-0-0
     Route: 048
  5. EUTHYROX [Concomitant]
     Active Substance: LEVOTHYROXINE SODIUM
  6. ATORVASTATIN [Concomitant]
     Active Substance: ATORVASTATIN
  7. JANUMET [Suspect]
     Active Substance: METFORMIN HYDROCHLORIDE\SITAGLIPTIN PHOSPHATE
     Dosage: 50/1000 (2X1)
     Route: 048
     Dates: start: 20160120, end: 20170303

REACTIONS (3)
  - Renal failure [Unknown]
  - Pancreatic carcinoma [Fatal]
  - Jaundice [Unknown]

NARRATIVE: CASE EVENT DATE: 2017
